FAERS Safety Report 6117562-9 (Version None)
Quarter: 2009Q1

REPORT INFORMATION
  Report Type: 
  Country: None (occurrence: None)
  Receive Date: 20090314
  Receipt Date: 20090120
  Transmission Date: 20090719
  Serious: No
  Sender: FDA-Public Use
  Company Number: US-ABBOTT-09P-163-0498939-00

PATIENT
  Sex: Male

DRUGS (2)
  1. HUMIRA [Suspect]
     Indication: CROHN'S DISEASE
  2. TYSABRI [Concomitant]
     Indication: CROHN'S DISEASE

REACTIONS (2)
  - FISTULA [None]
  - PERIRECTAL ABSCESS [None]
